FAERS Safety Report 22674135 (Version 2)
Quarter: 2023Q4

REPORT INFORMATION
  Report Type: Spontaneous
  Country: GB (occurrence: GB)
  Receive Date: 20230705
  Receipt Date: 20231004
  Transmission Date: 20240109
  Serious: Yes (Other)
  Sender: FDA-Public Use
  Company Number: GB-MHRA-ADR 28017447

PATIENT
  Age: 51 Year
  Sex: Male

DRUGS (7)
  1. NIVOLUMAB [Suspect]
     Active Substance: NIVOLUMAB
     Indication: Renal cell carcinoma
     Dosage: CYCLE 1
     Dates: start: 202112
  2. IPILIMUMAB [Suspect]
     Active Substance: IPILIMUMAB
     Indication: Renal cell carcinoma
     Dosage: CYCLE 1
     Dates: start: 202112
  3. CABOZANTINIB S-MALATE [Suspect]
     Active Substance: CABOZANTINIB S-MALATE
     Indication: Clear cell renal cell carcinoma
     Dosage: CYCLE 1
     Dates: start: 202112
  4. CABOZANTINIB S-MALATE [Suspect]
     Active Substance: CABOZANTINIB S-MALATE
     Dosage: CYCLE 2
     Dates: start: 20220321
  5. AXITINIB [Concomitant]
     Active Substance: AXITINIB
     Indication: Product used for unknown indication
  6. PEMBROLIZUMAB [Concomitant]
     Active Substance: PEMBROLIZUMAB
     Indication: Product used for unknown indication
  7. VEGF/VEGFR (VASCULAR ENDOTHELIAL GROWTH FACTOR) INHIBITORS [Concomitant]
     Indication: Product used for unknown indication

REACTIONS (3)
  - Seizure [Unknown]
  - Hypertransaminasaemia [Unknown]
  - Haemorrhage [Unknown]

NARRATIVE: CASE EVENT DATE: 20211201
